FAERS Safety Report 6542973-7 (Version None)
Quarter: 2010Q1

REPORT INFORMATION
  Report Type: 
  Country: None (occurrence: None)
  Receive Date: 20100120
  Receipt Date: 20100114
  Transmission Date: 20100710
  Serious: No
  Sender: FDA-Public Use
  Company Number: BR-ROCHE-653844

PATIENT
  Sex: Female
  Weight: 51.3 kg

DRUGS (2)
  1. TAMIFLU [Suspect]
     Dosage: 2 CAPS/DAY
     Route: 048
     Dates: start: 20090824
  2. HISTAMINE [Concomitant]
     Indication: RHINITIS

REACTIONS (2)
  - NO ADVERSE EVENT [None]
  - PREGNANCY [None]
